FAERS Safety Report 11867842 (Version 1)
Quarter: 2015Q4

REPORT INFORMATION
  Report Type: Spontaneous
  Country: FR (occurrence: FR)
  Receive Date: 20151224
  Receipt Date: 20151224
  Transmission Date: 20160305
  Serious: Yes (Death, Hospitalization)
  Sender: FDA-Public Use
  Company Number: FR-SA-2015SA218033

PATIENT
  Age: 82 Year
  Sex: Female

DRUGS (9)
  1. TRIATEC [Concomitant]
     Active Substance: RAMIPRIL
  2. LOXEN [Concomitant]
     Active Substance: NICARDIPINE HYDROCHLORIDE
  3. EXELON [Concomitant]
     Active Substance: RIVASTIGMINE TARTRATE
  4. RAMIPRIL. [Concomitant]
     Active Substance: RAMIPRIL
  5. LOVENOX [Suspect]
     Active Substance: ENOXAPARIN SODIUM
     Indication: PHLEBITIS
     Route: 058
     Dates: start: 201410, end: 201411
  6. FOSAMAX [Concomitant]
     Active Substance: ALENDRONATE SODIUM
  7. KARDEGIC [Concomitant]
     Active Substance: ASPIRIN LYSINE
  8. INIPOMP [Concomitant]
     Active Substance: PANTOPRAZOLE SODIUM
  9. SEROPLEX [Concomitant]
     Active Substance: ESCITALOPRAM OXALATE

REACTIONS (3)
  - Acute kidney injury [Fatal]
  - Haematoma [Fatal]
  - Shock haemorrhagic [Fatal]

NARRATIVE: CASE EVENT DATE: 20141123
